FAERS Safety Report 17402500 (Version 2)
Quarter: 2020Q1

REPORT INFORMATION
  Report Type: Spontaneous
  Country: US (occurrence: US)
  Receive Date: 20200211
  Receipt Date: 20200212
  Transmission Date: 20200409
  Serious: No
  Sender: FDA-Public Use
  Company Number: US-PFIZER INC-2020001610

PATIENT
  Age: 11 Year
  Sex: Male

DRUGS (5)
  1. GENOTROPIN [Suspect]
     Active Substance: SOMATROPIN
     Dosage: 1.4 MG, ALTERNATE DAY (1.2 MG ALTERNATING WITH 1.4MG DAILY)
     Dates: start: 20180816
  2. GENOTROPIN [Suspect]
     Active Substance: SOMATROPIN
     Indication: GROWTH HORMONE DEFICIENCY
     Dosage: 1.4
  3. GENOTROPIN [Suspect]
     Active Substance: SOMATROPIN
     Dosage: 1.2 MG, ALTERNATE DAY (1.2 MG ALTERNATING WITH 1.4MG DAILY)
     Dates: start: 20180816
  4. GENOTROPIN [Suspect]
     Active Substance: SOMATROPIN
     Dosage: 1.5
  5. GENOTROPIN [Suspect]
     Active Substance: SOMATROPIN
     Dosage: 1.6

REACTIONS (5)
  - Incorrect dose administered by device [Unknown]
  - Device issue [Unknown]
  - Device breakage [Unknown]
  - Scoliosis [Unknown]
  - Poor quality device used [Unknown]
